FAERS Safety Report 22139189 (Version 2)
Quarter: 2023Q1

REPORT INFORMATION
  Report Type: Spontaneous
  Country: US (occurrence: US)
  Receive Date: 20230327
  Receipt Date: 20230329
  Transmission Date: 20230417
  Serious: No
  Sender: FDA-Public Use
  Company Number: US-002147023-NVSC2023US067415

PATIENT
  Sex: Female

DRUGS (1)
  1. GILENYA [Suspect]
     Active Substance: FINGOLIMOD HYDROCHLORIDE
     Indication: Product used for unknown indication
     Dosage: 0.5 MG (IN JAN 203 TAKEN OFF)
     Route: 065
     Dates: end: 202301

REACTIONS (4)
  - Cerebral disorder [Unknown]
  - Paraesthesia [Unknown]
  - Migraine [Unknown]
  - Nausea [Unknown]
